FAERS Safety Report 10019073 (Version 1)
Quarter: 2014Q1

REPORT INFORMATION
  Report Type: Other
  Country: US (occurrence: US)
  Receive Date: 20140318
  Receipt Date: 20140318
  Transmission Date: 20141002
  Serious: Yes (Hospitalization)
  Sender: FDA-Public Use
  Company Number: US-BRISTOL-MYERS SQUIBB COMPANY-20419206

PATIENT
  Age: 16 Year
  Sex: Female

DRUGS (4)
  1. ARIPIPRAZOLE [Suspect]
  2. BUPROPION [Suspect]
  3. FLUOXETINE [Suspect]
  4. TOPIRAMATE [Suspect]

REACTIONS (3)
  - Drug abuse [Unknown]
  - Intentional overdose [Unknown]
  - Convulsion [Unknown]
